FAERS Safety Report 8483907-8 (Version None)
Quarter: 2012Q2

REPORT INFORMATION
  Report Type: 
  Country: None (occurrence: None)
  Receive Date: 20120402
  Receipt Date: 20110707
  Transmission Date: 20120825
  Serious: Yes (Hospitalization)
  Sender: FDA-Public Use
  Company Number: A-NJ2011-50843

PATIENT
  Age: 61 Year
  Sex: Female

DRUGS (1)
  1. EPOPROSTENOL SODIUM [Suspect]
     Indication: PULMONARY ARTERIAL HYPERTENSION
     Dosage: 24 NG/KG, PER MIN, IV DRIP
     Route: 041
     Dates: start: 20101228

REACTIONS (3)
  - PULMONARY ARTERIAL HYPERTENSION [None]
  - ASCITES [None]
  - CONDITION AGGRAVATED [None]
